FAERS Safety Report 9392626 (Version 3)
Quarter: 2013Q4

REPORT INFORMATION
  Report Type: Spontaneous
  Country: US (occurrence: US)
  Receive Date: 20130710
  Receipt Date: 20131127
  Transmission Date: 20140711
  Serious: Yes (Hospitalization, Other)
  Sender: FDA-Public Use
  Company Number: US-BAYER-2013-081906

PATIENT
  Age: 31 Year
  Sex: Female
  Weight: 81.63 kg

DRUGS (2)
  1. MIRENA [Suspect]
     Indication: CONTRACEPTION
     Dosage: 20 MCG/24HR, CONT
     Route: 015
     Dates: start: 20080922, end: 20091208
  2. MOTRIN [Concomitant]

REACTIONS (11)
  - Uterine perforation [None]
  - Abortion spontaneous [None]
  - Device dislocation [None]
  - Pelvic pain [None]
  - Abdominal pain [None]
  - Pregnancy with contraceptive device [None]
  - Injury [None]
  - Emotional distress [None]
  - Drug ineffective [None]
  - Depression [None]
  - Anxiety [None]
